FAERS Safety Report 8247448-5 (Version None)
Quarter: 2012Q1

REPORT INFORMATION
  Report Type: 
  Country: None (occurrence: None)
  Receive Date: 20120330
  Receipt Date: 20120119
  Transmission Date: 20120608
  Serious: No
  Sender: FDA-Public Use
  Company Number: US-MUTUAL PHARMACEUTICAL COMPANY, INC.-TZDN20120001

PATIENT
  Sex: Female

DRUGS (1)
  1. TRAZODONE HYDROCHLORIDE [Suspect]
     Route: 065

REACTIONS (2)
  - RASH [None]
  - OFF LABEL USE [None]
